FAERS Safety Report 4396260-6 (Version None)
Quarter: 2004Q3

REPORT INFORMATION
  Report Type: 
  Country: None (occurrence: None)
  Receive Date: 20040713
  Receipt Date: 20040706
  Transmission Date: 20050211
  Serious: Yes (Hospitalization)
  Sender: FDA-Public Use
  Company Number: PHEH2004US07247

PATIENT
  Age: 82 Year
  Sex: Female

DRUGS (14)
  1. ZELNORM [Suspect]
     Indication: IRRITABLE BOWEL SYNDROME
     Dosage: 6 MG, BID
     Route: 048
     Dates: start: 20040129, end: 20040324
  2. ZELNORM [Suspect]
     Dosage: 2 MG, BID
     Route: 048
     Dates: start: 20040325, end: 20040612
  3. METOPROLOL [Concomitant]
  4. IMDUR [Concomitant]
  5. PLAVIX [Concomitant]
  6. NEURONTIN [Concomitant]
  7. POTASSIUM [Concomitant]
  8. DARVOCET-N 100 [Concomitant]
  9. WARFARIN SODIUM [Concomitant]
  10. CARDIAZEM [Concomitant]
  11. FUROSEMIDE [Concomitant]
  12. XANAX [Concomitant]
  13. PANTOPRAZOLE [Concomitant]
  14. BENEFIBER [Concomitant]
     Dosage: UNK, BID
     Dates: start: 20040427

REACTIONS (5)
  - ABDOMINAL PAIN [None]
  - COLITIS ISCHAEMIC [None]
  - HAEMATOCHEZIA [None]
  - LEUKOCYTOSIS [None]
  - RED BLOOD CELL SEDIMENTATION RATE INCREASED [None]
